FAERS Safety Report 15482520 (Version 1)
Quarter: 2018Q4

REPORT INFORMATION
  Report Type: Spontaneous
  Country: US (occurrence: US)
  Receive Date: 20181010
  Receipt Date: 20181010
  Transmission Date: 20190205
  Serious: No
  Sender: FDA-Public Use
  Company Number: US-SA-2018SA277459

PATIENT
  Age: 57 Year
  Sex: Male
  Weight: 83.9 kg

DRUGS (4)
  1. DUPIXENT [Suspect]
     Active Substance: DUPILUMAB
     Indication: DERMATITIS ATOPIC
     Dosage: 1 DF, QOW
     Dates: start: 201804
  2. LISINOPRIL. [Concomitant]
     Active Substance: LISINOPRIL
  3. VITAMIN B12 [VITAMIN B12 NOS] [Concomitant]
  4. AMLODIPINE BESYLATE. [Concomitant]
     Active Substance: AMLODIPINE BESYLATE

REACTIONS (1)
  - Drug ineffective [Unknown]
